FAERS Safety Report 15632859 (Version 7)
Quarter: 2023Q4

REPORT INFORMATION
  Report Type: Report from Study
  Country: ES (occurrence: ES)
  Receive Date: 20181119
  Receipt Date: 20231016
  Transmission Date: 20240109
  Serious: Yes (Death, Hospitalization, Other)
  Sender: FDA-Public Use
  Company Number: ES-SAKK-2018SA212246AA

PATIENT
  Age: 44 Year
  Sex: Female
  Weight: 77.4 kg

DRUGS (7)
  1. ALEMTUZUMAB [Suspect]
     Active Substance: ALEMTUZUMAB
     Indication: Relapsing-remitting multiple sclerosis
     Dosage: UNK, QCY
     Route: 041
     Dates: start: 20171211, end: 20171215
  2. RIZATRIPTAN [Concomitant]
     Active Substance: RIZATRIPTAN
     Indication: Migraine
     Dosage: 10 MG, QOW
     Route: 065
     Dates: start: 20131209
  3. TOVIAZ [Concomitant]
     Active Substance: FESOTERODINE FUMARATE
     Indication: Ill-defined disorder
     Dosage: 4 MG, QOW
     Dates: start: 20180316
  4. TRAZODONE [Concomitant]
     Active Substance: TRAZODONE HYDROCHLORIDE
     Indication: Mixed anxiety and depressive disorder
     Dosage: 100 MG, NIGHT
     Route: 065
     Dates: start: 20180321
  5. ATORVASTATIN [Concomitant]
     Active Substance: ATORVASTATIN
     Indication: Dyslipidaemia
     Dosage: 10 MG, QD
     Dates: start: 20180413
  6. DULOXETINE [Concomitant]
     Active Substance: DULOXETINE
     Indication: Mixed anxiety and depressive disorder
     Dosage: 60 MG, BREAKFAST
     Route: 065
     Dates: start: 20180321
  7. PROGESTERONE [Concomitant]
     Active Substance: PROGESTERONE
     Indication: Menopause
     Dosage: 100 MG, QD
     Route: 065
     Dates: start: 20180711

REACTIONS (18)
  - Acute kidney injury [Fatal]
  - Thrombocytopenia [Fatal]
  - Cytomegalovirus infection [Fatal]
  - Adenovirus infection [Fatal]
  - Polyserositis [Fatal]
  - Haemophagocytic lymphohistiocytosis [Fatal]
  - Splenomegaly [Fatal]
  - Pyrexia [Fatal]
  - Serum ferritin increased [Fatal]
  - Bicytopenia [Fatal]
  - Anaemia [Fatal]
  - Haemoglobin decreased [Fatal]
  - Multiple organ dysfunction syndrome [Fatal]
  - Interleukin-2 receptor increased [Fatal]
  - Systolic anterior motion of mitral valve [Fatal]
  - Gastroenteritis [Unknown]
  - Respiratory tract infection [Recovered/Resolved]
  - Vomiting [Unknown]

NARRATIVE: CASE EVENT DATE: 20180413
